FAERS Safety Report 7328225-6 (Version None)
Quarter: 2011Q1

REPORT INFORMATION
  Report Type: 
  Country: None (occurrence: None)
  Receive Date: 20110303
  Receipt Date: 20110220
  Transmission Date: 20110831
  Serious: Yes (Other)
  Sender: FDA-Public Use
  Company Number: GB-JNJFOC-20110207909

PATIENT
  Sex: Male

DRUGS (4)
  1. DAKTACORT [Suspect]
     Indication: DERMATITIS
     Route: 061
  2. DAKTACORT [Suspect]
     Route: 061
  3. REGAINE EXTRA STRENGTH [Suspect]
     Route: 065
  4. REGAINE EXTRA STRENGTH [Suspect]
     Indication: HAIR GROWTH ABNORMAL
     Dosage: 0.6ML
     Route: 065

REACTIONS (7)
  - PAROSMIA [None]
  - IMPAIRED WORK ABILITY [None]
  - OFF LABEL USE [None]
  - DYSPNOEA [None]
  - INSOMNIA [None]
  - HEADACHE [None]
  - HYPOSMIA [None]
